FAERS Safety Report 21766957 (Version 1)
Quarter: 2022Q4

REPORT INFORMATION
  Report Type: Spontaneous
  Country: US (occurrence: None)
  Receive Date: 20221222
  Receipt Date: 20221222
  Transmission Date: 20230113
  Serious: Yes (Life-Threatening, Hospitalization, Disabling, Other)
  Sender: FDA-Public Use
  Company Number: None

PATIENT
  Age: 63 Year
  Sex: Female

DRUGS (1)
  1. AXICABTAGENE CILOLEUCEL [Suspect]
     Active Substance: AXICABTAGENE CILOLEUCEL

REACTIONS (10)
  - Swelling face [None]
  - Disease recurrence [None]
  - Pyrexia [None]
  - B-cell lymphoma [None]
  - Tremor [None]
  - Vision blurred [None]
  - Eye symptom [None]
  - Swelling of eyelid [None]
  - Aphasia [None]
  - Cerebrovascular accident [None]
